FAERS Safety Report 10084964 (Version 2)
Quarter: 2014Q2

REPORT INFORMATION
  Report Type: Spontaneous
  Country: TR (occurrence: TR)
  Receive Date: 20140417
  Receipt Date: 20140418
  Transmission Date: 20141212
  Serious: Yes (Other)
  Sender: FDA-Public Use
  Company Number: TR-TEVA-476356ISR

PATIENT
  Sex: 0

DRUGS (1)
  1. TAMOXIFEN [Suspect]

REACTIONS (1)
  - Colour blindness [Unknown]
